FAERS Safety Report 5122993-X (Version None)
Quarter: 2006Q4

REPORT INFORMATION
  Report Type: 
  Country: None (occurrence: None)
  Receive Date: 20061009
  Receipt Date: 20060925
  Transmission Date: 20070319
  Serious: Yes (Other)
  Sender: FDA-Public Use
  Company Number: PHNU2006DE03240

PATIENT
  Age: 39 Year
  Sex: Male

DRUGS (2)
  1. RITALIN [Suspect]
     Indication: ATTENTION DEFICIT/HYPERACTIVITY DISORDER
     Dosage: 50 MG/DAY
     Route: 049
     Dates: start: 20040101
  2. HYPERICUM EXTRACT [Concomitant]
     Dosage: UNKNOWN
     Route: 048

REACTIONS (1)
  - PROSTATITIS [None]
